FAERS Safety Report 15300620 (Version 2)
Quarter: 2018Q3

REPORT INFORMATION
  Report Type: Spontaneous
  Country: US (occurrence: US)
  Receive Date: 20180821
  Receipt Date: 20180918
  Transmission Date: 20181010
  Serious: No
  Sender: FDA-Public Use
  Company Number: US-ASTRAZENECA-2018SE96083

PATIENT
  Sex: Female
  Weight: 51.3 kg

DRUGS (1)
  1. TUDORZA PRESSAIR [Suspect]
     Active Substance: ACLIDINIUM BROMIDE
     Indication: CHRONIC OBSTRUCTIVE PULMONARY DISEASE
     Route: 055
     Dates: start: 201806

REACTIONS (5)
  - Off label use [Unknown]
  - Memory impairment [Unknown]
  - Device malfunction [Unknown]
  - Body height decreased [Unknown]
  - Weight decreased [Unknown]
